FAERS Safety Report 10245064 (Version 1)
Quarter: 2014Q2

REPORT INFORMATION
  Report Type: Spontaneous
  Country: DE (occurrence: None)
  Receive Date: 20140616
  Receipt Date: 20140616
  Transmission Date: 20141212
  Serious: Yes (Hospitalization)
  Sender: FDA-Public Use
  Company Number: DE-H14001-14-00028

PATIENT
  Age: 41 Year
  Sex: Male
  Weight: 108 kg

DRUGS (1)
  1. CEFUROXIM [Suspect]
     Indication: INFECTION PROPHYLAXIS
     Route: 042
     Dates: start: 20140313, end: 20140313

REACTIONS (2)
  - Anaphylactic reaction [None]
  - Respiratory failure [None]
